FAERS Safety Report 20538590 (Version 1)
Quarter: 2022Q1

REPORT INFORMATION
  Report Type: Spontaneous
  Country: TR (occurrence: TR)
  Receive Date: 20220302
  Receipt Date: 20220302
  Transmission Date: 20220424
  Serious: Yes (Other)
  Sender: FDA-Public Use
  Company Number: TR-JNJFOC-20210903031

PATIENT

DRUGS (1)
  1. REMICADE [Suspect]
     Active Substance: INFLIXIMAB
     Indication: Product used for unknown indication
     Dosage: TREATMENT WITH REMICADE FOR 1 YEAR
     Route: 042

REACTIONS (3)
  - Intestinal ulcer [Unknown]
  - Diarrhoea [Unknown]
  - Adverse event [Unknown]
